FAERS Safety Report 7796203-9 (Version None)
Quarter: 2011Q4

REPORT INFORMATION
  Report Type: 
  Country: None (occurrence: None)
  Receive Date: 20111004
  Receipt Date: 20110930
  Transmission Date: 20120403
  Serious: No
  Sender: FDA-Public Use
  Company Number: US-BAYER-2011-094353

PATIENT
  Sex: Female

DRUGS (1)
  1. CLIMARA [Suspect]
     Indication: MIGRAINE
     Dosage: UNK UNK, CONT
     Route: 062
     Dates: end: 20110901

REACTIONS (4)
  - WEIGHT INCREASED [None]
  - ABDOMINAL DISTENSION [None]
  - HOT FLUSH [None]
  - BREAST ENLARGEMENT [None]
